FAERS Safety Report 4522694-2 (Version None)
Quarter: 2004Q4

REPORT INFORMATION
  Report Type: 
  Country: None (occurrence: None)
  Receive Date: 20041025
  Receipt Date: 20040708
  Transmission Date: 20050328
  Serious: Yes (Other)
  Sender: FDA-Public Use
  Company Number: HQWYE979512JUL04

PATIENT
  Age: 63 Year
  Sex: Female

DRUGS (2)
  1. PREMARIN [Suspect]
     Dates: start: 19871101, end: 20010801
  2. MEDROXYPROGESTERONE ACETATE [Suspect]
     Dates: start: 19871101, end: 20010801

REACTIONS (2)
  - DEEP VEIN THROMBOSIS [None]
  - LACUNAR INFARCTION [None]
